FAERS Safety Report 6200279-X (Version None)
Quarter: 2009Q2

REPORT INFORMATION
  Report Type: 
  Country: None (occurrence: None)
  Receive Date: 20090518
  Receipt Date: 20090414
  Transmission Date: 20091009
  Serious: No
  Sender: FDA-Public Use
  Company Number: WAES 0904USA02056

PATIENT
  Age: 81 Year
  Sex: Female

DRUGS (2)
  1. JANUVIA [Suspect]
     Dosage: 100 MG/DAILY/PO
     Route: 048
     Dates: end: 20090401
  2. JANUVIA [Suspect]
     Dosage: 100 MG/DAILY/PO
     Route: 048
     Dates: start: 20080101

REACTIONS (1)
  - NASOPHARYNGITIS [None]
